FAERS Safety Report 22624491 (Version 2)
Quarter: 2023Q2

REPORT INFORMATION
  Report Type: Spontaneous
  Country: US (occurrence: US)
  Receive Date: 20230621
  Receipt Date: 20230628
  Transmission Date: 20230722
  Serious: Yes (Life-Threatening, Other)
  Sender: FDA-Public Use
  Company Number: US-PFIZER INC-202300223783

PATIENT
  Age: 12 Year
  Sex: Female

DRUGS (5)
  1. AMINOCAPROIC ACID [Suspect]
     Active Substance: AMINOCAPROIC ACID
     Indication: Mucosal haemorrhage
     Dosage: 6 G EVERY 6 H (5)
     Route: 042
  2. AMINOCAPROIC ACID [Suspect]
     Active Substance: AMINOCAPROIC ACID
     Dosage: 4-36 G/DAY FOR A CUMULATIVE DOSE OF 2066 G.
  3. CYCLOSPORINE [Concomitant]
     Active Substance: CYCLOSPORINE
     Indication: Thrombocytopenia
     Dosage: UNK
  4. DANAZOL [Concomitant]
     Active Substance: DANAZOL
     Indication: Thrombocytopenia
     Dosage: UNK
  5. VINCRISTINE [Concomitant]
     Active Substance: VINCRISTINE
     Indication: Thrombocytopenia
     Dosage: UNK

REACTIONS (1)
  - Myopathy [Recovering/Resolving]
